FAERS Safety Report 9654964 (Version 1)
Quarter: 2013Q4

REPORT INFORMATION
  Report Type: Spontaneous
  Country: US (occurrence: US)
  Receive Date: 20131029
  Receipt Date: 20131029
  Transmission Date: 20140711
  Serious: Yes (Other)
  Sender: FDA-Public Use
  Company Number: US-NAPPMUNDI-USA-2012-0091655

PATIENT
  Sex: Male

DRUGS (5)
  1. OXYCONTIN (NDA 22-272) [Suspect]
     Indication: DRUG ABUSE
  2. HEROIN [Suspect]
     Indication: DRUG ABUSE
  3. SOMA [Suspect]
     Indication: DRUG ABUSE
  4. XANAX [Suspect]
     Indication: DRUG ABUSE
  5. NORCO [Suspect]
     Indication: DRUG ABUSE

REACTIONS (3)
  - Overdose [Unknown]
  - Substance abuse [Unknown]
  - Coma [Unknown]
